FAERS Safety Report 10516458 (Version 2)
Quarter: 2015Q2

REPORT INFORMATION
  Report Type: Spontaneous
  Country: US (occurrence: US)
  Receive Date: 20141014
  Receipt Date: 20150420
  Transmission Date: 20150821
  Serious: Yes (Death, Hospitalization, Other)
  Sender: FDA-Public Use
  Company Number: US-MERCK-1410USA006573

PATIENT
  Sex: Female
  Weight: 79.82 kg

DRUGS (2)
  1. JANUVIA [Suspect]
     Active Substance: SITAGLIPTIN PHOSPHATE
     Dosage: 100 MG, QD
     Route: 048
     Dates: start: 201008, end: 201111
  2. JANUVIA [Suspect]
     Active Substance: SITAGLIPTIN PHOSPHATE
     Indication: TYPE 2 DIABETES MELLITUS
     Dosage: 50 MG, QD
     Route: 048
     Dates: start: 200908, end: 201007

REACTIONS (4)
  - Death [Fatal]
  - Pancreatic carcinoma [Unknown]
  - Hepatic mass [Unknown]
  - Thrombosis [Unknown]

NARRATIVE: CASE EVENT DATE: 201109
